FAERS Safety Report 21356474 (Version 1)
Quarter: 2022Q3

REPORT INFORMATION
  Report Type: Spontaneous
  Country: CN (occurrence: CN)
  Receive Date: 20220920
  Receipt Date: 20220920
  Transmission Date: 20221026
  Serious: Yes (Life-Threatening, Other)
  Sender: FDA-Public Use
  Company Number: CN-PFIZER INC-PV202200065598

PATIENT
  Age: 41 Year
  Sex: Female
  Weight: 55 kg

DRUGS (12)
  1. SOLU-MEDROL [Suspect]
     Active Substance: METHYLPREDNISOLONE SODIUM SUCCINATE
     Indication: Dermatitis allergic
     Dosage: 40 MG, 1X/DAY
     Route: 041
     Dates: start: 20220818, end: 20220819
  2. ABROCITINIB [Suspect]
     Active Substance: ABROCITINIB
     Indication: Dermatitis atopic
     Dosage: 100 MG, 1X/DAY
     Route: 048
     Dates: start: 20220818, end: 20220819
  3. CLINDAMYCIN PHOSPHATE [Suspect]
     Active Substance: CLINDAMYCIN PHOSPHATE
     Indication: Dermatitis atopic
     Dosage: 1.2 G, 1X/DAY
     Route: 041
     Dates: start: 20220818, end: 20220819
  4. MIZOLASTINE [Suspect]
     Active Substance: MIZOLASTINE
     Indication: Dermatitis allergic
     Dosage: 10 MG, 1X/DAY
     Route: 048
     Dates: start: 20220719, end: 20220725
  5. MIZOLASTINE [Suspect]
     Active Substance: MIZOLASTINE
     Dosage: 10 MG, 1X/DAY
     Route: 048
     Dates: start: 20220818, end: 20220819
  6. SODIUM THIOSULFATE [Suspect]
     Active Substance: SODIUM THIOSULFATE
     Indication: Dermatitis allergic
     Dosage: 0.64 G, 1X/DAY
     Route: 042
     Dates: start: 20220818, end: 20220819
  7. MOMETASONE FUROATE [Suspect]
     Active Substance: MOMETASONE FUROATE
     Indication: Dermatitis allergic
     Dosage: 1 G, 1X/DAY
     Dates: start: 20220818, end: 20220819
  8. SODIUM CHLORIDE [Concomitant]
     Active Substance: SODIUM CHLORIDE
     Indication: Vehicle solution use
     Dosage: 100 ML, 1X/DAY
     Route: 041
     Dates: start: 20220818, end: 20220819
  9. STERILE WATER [Concomitant]
     Active Substance: WATER
     Indication: Vehicle solution use
     Dosage: 20 ML, 1X/DAY
     Route: 042
     Dates: start: 20220818, end: 20220819
  10. HYDROXYCHLOROQUINE SULFATE [Concomitant]
     Active Substance: HYDROXYCHLOROQUINE SULFATE
     Indication: Dermatitis allergic
     Dosage: 100 MG, 2X/DAY
     Route: 048
     Dates: start: 20220719, end: 20220725
  11. ESTAZOLAM [Concomitant]
     Active Substance: ESTAZOLAM
     Indication: Sleep disorder
     Dosage: 1 MG, 1X/DAY
     Route: 048
     Dates: start: 20220816, end: 20220818
  12. CHLORPHENIRAMINE MALEATE [Concomitant]
     Active Substance: CHLORPHENIRAMINE MALEATE
     Indication: Urticaria
     Dosage: 10 MG, 1X/DAY
     Route: 030
     Dates: start: 20220816, end: 20220816

REACTIONS (15)
  - Arrhythmia [Not Recovered/Not Resolved]
  - Anaphylactic shock [Not Recovered/Not Resolved]
  - Sudden cardiac death [Not Recovered/Not Resolved]
  - Loss of consciousness [Unknown]
  - Brain oedema [Unknown]
  - Intracranial pressure increased [Unknown]
  - Cardio-respiratory arrest [Unknown]
  - Coma [Unknown]
  - Metabolic acidosis [Unknown]
  - Rash erythematous [Unknown]
  - Hyperlactacidaemia [Unknown]
  - Anal incontinence [Unknown]
  - Fibrin D dimer increased [Unknown]
  - Blood fibrinogen decreased [Unknown]
  - Prothrombin time prolonged [Unknown]

NARRATIVE: CASE EVENT DATE: 20220820
